FAERS Safety Report 10595341 (Version 2)
Quarter: 2015Q1

REPORT INFORMATION
  Report Type: Spontaneous
  Country: US (occurrence: None)
  Receive Date: 20141118
  Receipt Date: 20150309
  Transmission Date: 20150720
  Serious: Yes (Hospitalization, Other)
  Sender: FDA-Public Use
  Company Number: RAP-0199-2014

PATIENT
  Age: 29 Year
  Sex: Female
  Weight: 42.64 kg

DRUGS (3)
  1. KEPPRA [Concomitant]
     Active Substance: LEVETIRACETAM
  2. PROCYSBI DELAYED-RELEASE [Suspect]
     Active Substance: CYSTEAMINE BITARTRATE
     Indication: AMINO ACID METABOLISM DISORDER
     Route: 048
     Dates: start: 20131115
  3. CYSTARAN (MERCAPTAMINE) [Concomitant]

REACTIONS (2)
  - Blood potassium increased [None]
  - Blood calcium decreased [None]
